FAERS Safety Report 6544438-5 (Version None)
Quarter: 2010Q1

REPORT INFORMATION
  Report Type: 
  Country: None (occurrence: None)
  Receive Date: 20100120
  Receipt Date: 20100120
  Transmission Date: 20100710
  Serious: Yes (Other)
  Sender: FDA-Public Use
  Company Number: None

PATIENT
  Age: 47 Year
  Sex: Female
  Weight: 58.9676 kg

DRUGS (2)
  1. LEVAQUIN [Suspect]
     Indication: RESPIRATORY TRACT INFECTION
     Dosage: 500 MG 1 PER DAY PO
     Route: 048
     Dates: start: 20091226, end: 20100101
  2. LEVAQUIN [Suspect]
     Indication: COUGH
     Dates: start: 20100111, end: 20100117

REACTIONS (13)
  - CHEST DISCOMFORT [None]
  - CHEST PAIN [None]
  - CHILLS [None]
  - DIZZINESS [None]
  - FATIGUE [None]
  - MUSCLE SPASMS [None]
  - NASAL DISCOMFORT [None]
  - ORAL DISCOMFORT [None]
  - PALPITATIONS [None]
  - PANIC ATTACK [None]
  - PARAESTHESIA [None]
  - TENDON DISORDER [None]
  - THIRST [None]
